FAERS Safety Report 7701304-7 (Version None)
Quarter: 2011Q3

REPORT INFORMATION
  Report Type: 
  Country: None (occurrence: None)
  Receive Date: 20110822
  Receipt Date: 20110812
  Transmission Date: 20111222
  Serious: Yes (Other)
  Sender: FDA-Public Use
  Company Number: BR-US-EMD SERONO, INC.-7076864

PATIENT
  Sex: Female

DRUGS (2)
  1. REBIF [Suspect]
     Indication: RELAPSING-REMITTING MULTIPLE SCLEROSIS
     Dates: start: 20100923
  2. UNSPECIFIED MEDICATION [Concomitant]
     Indication: ANALGESIC THERAPY

REACTIONS (5)
  - FATIGUE [None]
  - OVARIAN NEOPLASM [None]
  - JOINT LOCK [None]
  - DYSARTHRIA [None]
  - CHILLS [None]
